FAERS Safety Report 25559766 (Version 1)
Quarter: 2025Q3

REPORT INFORMATION
  Report Type: Spontaneous
  Country: US (occurrence: US)
  Receive Date: 20250715
  Receipt Date: 20250715
  Transmission Date: 20251020
  Serious: No
  Sender: NOVO NORDISK
  Company Number: US-NOVOPROD-1420375

PATIENT
  Sex: Male

DRUGS (2)
  1. OZEMPIC [Suspect]
     Active Substance: SEMAGLUTIDE
     Indication: Gallbladder disorder
  2. OZEMPIC [Suspect]
     Active Substance: SEMAGLUTIDE
     Indication: Renal impairment
     Dosage: 0.25 MG, QW
     Dates: start: 202503

REACTIONS (3)
  - Visual impairment [Unknown]
  - Hypoacusis [Unknown]
  - Product use in unapproved indication [Unknown]
